FAERS Safety Report 12265958 (Version 2)
Quarter: 2016Q2

REPORT INFORMATION
  Report Type: Report from Study
  Country: US (occurrence: US)
  Receive Date: 20160413
  Receipt Date: 20160414
  Transmission Date: 20160815
  Serious: Yes (Death, Hospitalization, Disabling, Other)
  Sender: FDA-Public Use
  Company Number: US-ASTRAZENECA-2016SE36948

PATIENT
  Age: 78 Year
  Sex: Male

DRUGS (1)
  1. CRESTOR [Suspect]
     Active Substance: ROSUVASTATIN CALCIUM
     Route: 048

REACTIONS (8)
  - Pyrexia [Unknown]
  - Seizure [Unknown]
  - Cerebrovascular accident [Unknown]
  - Haemorrhagic stroke [Not Recovered/Not Resolved]
  - Fall [Unknown]
  - Aphasia [Unknown]
  - Atrial fibrillation [Unknown]
  - Death [Fatal]

NARRATIVE: CASE EVENT DATE: 201511
